FAERS Safety Report 19473024 (Version 1)
Quarter: 2021Q2

REPORT INFORMATION
  Report Type: Report from Study
  Country: DE (occurrence: DE)
  Receive Date: 20210629
  Receipt Date: 20210629
  Transmission Date: 20210717
  Serious: Yes (Other)
  Sender: FDA-Public Use
  Company Number: DE-BIOGEN-2021BI01024532

PATIENT
  Age: 0 Day
  Sex: Male

DRUGS (7)
  1. AVONEX PEN [Suspect]
     Active Substance: INTERFERON BETA-1A
  2. IBUPROFEN. [Concomitant]
     Active Substance: IBUPROFEN
     Indication: MATERNAL EXPOSURE TIMING UNSPECIFIED
     Dosage: DAILY, DOSE OF ADMIN UNKNOWN
     Route: 065
     Dates: start: 2015
  3. FOLIC ACID. [Concomitant]
     Active Substance: FOLIC ACID
     Indication: MATERNAL EXPOSURE TIMING UNSPECIFIED
     Dosage: DAILY, DOSE OF ADMIN UNKNOWN
     Route: 065
     Dates: start: 2016, end: 201701
  4. AVONEX PEN [Suspect]
     Active Substance: INTERFERON BETA-1A
     Indication: MATERNAL EXPOSURE TIMING UNSPECIFIED
     Route: 030
     Dates: start: 20150901, end: 201605
  5. MAGNESIUM [Concomitant]
     Active Substance: MAGNESIUM
     Indication: MATERNAL EXPOSURE TIMING UNSPECIFIED
     Dosage: DAILY, DOSE OF ADMIN UNKNOWN
     Route: 065
     Dates: start: 2016, end: 201701
  6. AVONEX PEN [Suspect]
     Active Substance: INTERFERON BETA-1A
  7. AVONEX PEN [Suspect]
     Active Substance: INTERFERON BETA-1A

REACTIONS (2)
  - Foetal exposure during pregnancy [Recovered/Resolved]
  - Developmental hip dysplasia [Recovered/Resolved]

NARRATIVE: CASE EVENT DATE: 20170109
